FAERS Safety Report 7054640-4 (Version None)
Quarter: 2010Q4

REPORT INFORMATION
  Report Type: 
  Country: None (occurrence: None)
  Receive Date: 20101020
  Receipt Date: 20101013
  Transmission Date: 20110411
  Serious: Yes (Life-Threatening, Hospitalization)
  Sender: FDA-Public Use
  Company Number: DE-ABBOTT-10P-062-0649252-00

PATIENT
  Sex: Female
  Weight: 70 kg

DRUGS (14)
  1. HUMIRA [Suspect]
     Indication: RHEUMATOID ARTHRITIS
     Dosage: EVERY OTHER WEEK
     Dates: start: 20050530
  2. MTX [Suspect]
     Indication: RHEUMATOID ARTHRITIS
     Dosage: ONCE PER WEEK
     Route: 058
     Dates: start: 19970601
  3. SULFASALASIN [Concomitant]
     Indication: RHEUMATOID ARTHRITIS
     Dates: start: 20040101, end: 20040801
  4. HYDROXYCHLOROQUINE/CHLOROQUINE [Concomitant]
     Indication: RHEUMATOID ARTHRITIS
     Dates: start: 20040101, end: 20040801
  5. NEBIVOLOL [Concomitant]
     Indication: HYPERTENSION
  6. NEBIVOLOL [Concomitant]
     Indication: CORONARY ARTERY DISEASE
  7. SIMVASTATIN [Concomitant]
     Indication: HYPERLIPIDAEMIA
  8. CIPRALEX [Concomitant]
     Indication: MENTAL DISORDER
  9. EUTHYROX [Concomitant]
     Indication: HYPOTHYROIDISM
  10. MTX [Concomitant]
     Indication: PRODUCT USED FOR UNKNOWN INDICATION
  11. LEFLUNOMIDE [Concomitant]
     Indication: PRODUCT USED FOR UNKNOWN INDICATION
  12. GLUCOCORTICOIDS [Concomitant]
     Indication: PRODUCT USED FOR UNKNOWN INDICATION
  13. QUENSYL [Concomitant]
     Indication: PRODUCT USED FOR UNKNOWN INDICATION
  14. CYCLOSPORINE [Concomitant]
     Indication: PRODUCT USED FOR UNKNOWN INDICATION

REACTIONS (4)
  - CEREBELLAR INFARCTION [None]
  - CEREBROVASCULAR ACCIDENT [None]
  - DIZZINESS [None]
  - GAIT DISTURBANCE [None]
